FAERS Safety Report 5395479-5 (Version None)
Quarter: 2007Q3

REPORT INFORMATION
  Report Type: 
  Country: None (occurrence: None)
  Receive Date: 20070724
  Receipt Date: 20070718
  Transmission Date: 20080115
  Serious: Yes (Other)
  Sender: FDA-Public Use
  Company Number: B0480263A

PATIENT
  Age: 27 Year
  Sex: Female
  Weight: 74 kg

DRUGS (2)
  1. ZYBAN [Suspect]
     Indication: SMOKING CESSATION THERAPY
     Dosage: 150MG TWICE PER DAY
     Route: 048
     Dates: start: 20070615, end: 20070703
  2. CERAZETTE [Concomitant]
     Indication: ORAL CONTRACEPTION
     Route: 048

REACTIONS (3)
  - MUSCULOSKELETAL STIFFNESS [None]
  - NECK MASS [None]
  - PAIN [None]
